FAERS Safety Report 8251662-2 (Version None)
Quarter: 2012Q2

REPORT INFORMATION
  Report Type: 
  Country: None (occurrence: None)
  Receive Date: 20120402
  Receipt Date: 20120123
  Transmission Date: 20120825
  Serious: No
  Sender: FDA-Public Use
  Company Number: US-ABBOTT-12P-163-0896824-00

PATIENT
  Sex: Male
  Weight: 105.33 kg

DRUGS (6)
  1. VALIUM [Concomitant]
     Indication: INSOMNIA
  2. OXYCODONE HCL [Concomitant]
     Indication: PAIN
  3. MORPHINE [Concomitant]
     Indication: PAIN
  4. PHENERGAN HCL [Concomitant]
     Indication: NAUSEA
  5. ANDROGEL [Suspect]
     Indication: BLOOD TESTOSTERONE DECREASED
     Dosage: 2 PUMPS
     Dates: start: 20120120
  6. UNKNOWN BLOOD PRESSURE MEDICATION [Concomitant]
     Indication: HYPERTENSION

REACTIONS (1)
  - INSOMNIA [None]
